FAERS Safety Report 7941618-9 (Version None)
Quarter: 2011Q4

REPORT INFORMATION
  Report Type: 
  Country: None (occurrence: None)
  Receive Date: 20111128
  Receipt Date: 20110929
  Transmission Date: 20120403
  Serious: No
  Sender: FDA-Public Use
  Company Number: US-BAYER-2011-094917

PATIENT
  Age: 17 Year
  Sex: Female
  Weight: 78 kg

DRUGS (1)
  1. ALEVE (CAPLET) [Suspect]
     Indication: HEADACHE
     Dosage: 1 DF, ONCE
     Route: 048
     Dates: start: 20110929, end: 20110929

REACTIONS (2)
  - NO ADVERSE EVENT [None]
  - ANXIETY [None]
